FAERS Safety Report 10169333 (Version 2)
Quarter: 2014Q2

REPORT INFORMATION
  Report Type: Spontaneous
  Country: US (occurrence: US)
  Receive Date: 20140513
  Receipt Date: 20140604
  Transmission Date: 20141212
  Serious: Yes (Other)
  Sender: FDA-Public Use
  Company Number: US-PFIZER INC-2014127729

PATIENT
  Age: 72 Year
  Sex: Female

DRUGS (7)
  1. SUTENT [Suspect]
     Indication: RENAL CANCER
     Dosage: UNK
  2. SUTENT [Suspect]
     Dosage: 50 MG, DAILY
     Dates: start: 20140417
  3. SUTENT [Suspect]
     Dosage: 50 MG, DAILY
     Dates: start: 20140501
  4. SUTENT [Suspect]
     Dosage: 50 MG, (EVERY OTHER DAY)
  5. BENAZEPRIL HCL [Concomitant]
     Dosage: UNK
  6. FERROUS FUMARATE [Concomitant]
     Dosage: UNK
  7. ONDANSETRON HYDROCHLORIDE [Concomitant]
     Dosage: UNK

REACTIONS (4)
  - Neutropenia [Not Recovered/Not Resolved]
  - Leukopenia [Unknown]
  - Blood count abnormal [Unknown]
  - Anaemia [Unknown]
